FAERS Safety Report 24451884 (Version 1)
Quarter: 2024Q4

REPORT INFORMATION
  Report Type: Spontaneous
  Country: US (occurrence: US)
  Receive Date: 20241017
  Receipt Date: 20241017
  Transmission Date: 20250114
  Serious: No
  Sender: GALDERMA
  Company Number: US-GALDERMA-US2024014267

PATIENT

DRUGS (2)
  1. DIFFERIN GEL [Suspect]
     Active Substance: ADAPALENE
     Indication: Acne
     Dosage: 1 DOSAGE FORM, APPLIED AROUND THE BASE OF THE NOSE AND CHIN
     Route: 061
     Dates: start: 20240915, end: 20240917
  2. DIFFERIN DAILY DEEP CLEANSER WITH BPO [Suspect]
     Active Substance: BENZOYL PEROXIDE
     Indication: Acne
     Dosage: 1 DOSAGE FORM, APPLIED AROUND THE BASE OF THE NOSE AND CHIN
     Route: 061
     Dates: start: 20240915, end: 20240917

REACTIONS (2)
  - Rash papular [Recovering/Resolving]
  - Application site pain [Recovering/Resolving]

NARRATIVE: CASE EVENT DATE: 20240917
